FAERS Safety Report 7825015-2 (Version None)
Quarter: 2011Q4

REPORT INFORMATION
  Report Type: 
  Country: None (occurrence: None)
  Receive Date: 20111019
  Receipt Date: 20111012
  Transmission Date: 20120403
  Serious: Yes (Other)
  Sender: FDA-Public Use
  Company Number: RS-MERCK-1110USA01838

PATIENT
  Sex: Female

DRUGS (4)
  1. SINGULAIR [Suspect]
     Indication: ASTHMA
     Route: 048
  2. AMINOPHYLLINE [Concomitant]
     Dosage: 2X1
     Route: 065
  3. GLIORAL [Concomitant]
     Dosage: 2X1
     Route: 048
  4. FLUTICASONE PROPIONATE/SALMETEROL [Concomitant]
     Dosage: 500/50MCG/2X1
     Route: 065

REACTIONS (7)
  - LUNG INFILTRATION [None]
  - BODY TEMPERATURE INCREASED [None]
  - ALLERGIC GRANULOMATOUS ANGIITIS [None]
  - EOSINOPHILIA [None]
  - MALAISE [None]
  - COUGH [None]
  - ASPHYXIA [None]
